FAERS Safety Report 24378188 (Version 1)
Quarter: 2024Q3

REPORT INFORMATION
  Report Type: Spontaneous
  Country: US (occurrence: US)
  Receive Date: 20240930
  Receipt Date: 20240930
  Transmission Date: 20241017
  Serious: Yes (Death, Life-Threatening, Hospitalization, Other)
  Sender: PFIZER
  Company Number: US-PFIZER INC-PV202400125432

PATIENT
  Age: 23 Year
  Sex: Male

DRUGS (3)
  1. BLEOMYCIN SULFATE [Suspect]
     Active Substance: BLEOMYCIN SULFATE
     Indication: Germ cell cancer
     Dosage: UNK
  2. ETOPOSIDE [Concomitant]
     Active Substance: ETOPOSIDE
     Indication: Germ cell cancer
     Dosage: UNK
  3. CISPLATIN [Concomitant]
     Active Substance: CISPLATIN
     Indication: Germ cell cancer
     Dosage: UNK

REACTIONS (1)
  - Eosinophilic pneumonia [Fatal]
